FAERS Safety Report 6437921-4 (Version None)
Quarter: 2009Q4

REPORT INFORMATION
  Report Type: 
  Country: None (occurrence: None)
  Receive Date: 20091112
  Receipt Date: 20091102
  Transmission Date: 20100525
  Serious: Yes (Other)
  Sender: FDA-Public Use
  Company Number: AR-PFIZER INC-2009292534

PATIENT
  Age: 52 Year
  Sex: Female

DRUGS (2)
  1. VFEND [Suspect]
     Indication: FEBRILE NEUTROPENIA
     Dosage: 200 MG, LYOPHILIZED AMPUOLE BOTTLE X 1, UNK
     Route: 042
     Dates: start: 20090828
  2. PACLITAXEL [Concomitant]
     Indication: BREAST CANCER
     Dosage: UNK

REACTIONS (1)
  - DEPRESSED LEVEL OF CONSCIOUSNESS [None]
